FAERS Safety Report 20225539 (Version 3)
Quarter: 2024Q1

REPORT INFORMATION
  Report Type: Spontaneous
  Country: ES (occurrence: ES)
  Receive Date: 20211224
  Receipt Date: 20240116
  Transmission Date: 20240410
  Serious: Yes (Death, Life-Threatening, Hospitalization)
  Sender: FDA-Public Use
  Company Number: ES-SAMSUNG BIOEPIS-SB-2021-29854

PATIENT
  Age: 48 Year
  Sex: Female

DRUGS (12)
  1. INFLIXIMAB [Suspect]
     Active Substance: INFLIXIMAB
     Indication: Immune-mediated myocarditis
     Route: 065
  2. PEMBROLIZUMAB [Suspect]
     Active Substance: PEMBROLIZUMAB
     Indication: Thymoma
     Route: 065
     Dates: start: 202010
  3. PEMBROLIZUMAB [Suspect]
     Active Substance: PEMBROLIZUMAB
     Indication: Metastases to bone
  4. PEMBROLIZUMAB [Suspect]
     Active Substance: PEMBROLIZUMAB
     Indication: Metastases to lung
  5. PEMBROLIZUMAB [Suspect]
     Active Substance: PEMBROLIZUMAB
     Indication: Metastases to pleura
  6. KEYTRUDA [Suspect]
     Active Substance: PEMBROLIZUMAB
     Indication: Thymoma malignant recurrent
     Dosage: PEMBROLIZUMAB 2MG/KG EVERY 3 WEEKS STARTS 2-OCT-2020
     Route: 042
     Dates: start: 20201002, end: 20201002
  7. KEYTRUDA [Suspect]
     Active Substance: PEMBROLIZUMAB
     Indication: Metastases to pleura
  8. KEYTRUDA [Suspect]
     Active Substance: PEMBROLIZUMAB
     Indication: Thymoma
  9. KEYTRUDA [Suspect]
     Active Substance: PEMBROLIZUMAB
     Indication: Metastases to lung
  10. ISOPROTERENOL [Concomitant]
     Active Substance: ISOPROTERENOL
     Indication: Immune-mediated myocarditis
     Dosage: UNKNOWN
     Route: 041
  11. METHYLPREDNISOLONE [Concomitant]
     Active Substance: METHYLPREDNISOLONE
     Indication: Immune-mediated myocarditis
     Route: 065
  12. METHYLPREDNISOLONE [Concomitant]
     Active Substance: METHYLPREDNISOLONE
     Route: 042

REACTIONS (11)
  - Immune-mediated myocarditis [Fatal]
  - Myasthenia gravis [Fatal]
  - Atrioventricular block complete [Fatal]
  - Cardiac failure congestive [Fatal]
  - Hypotension [Fatal]
  - Acute kidney injury [Fatal]
  - Cardiogenic shock [Fatal]
  - Respiratory failure [Fatal]
  - Product use in unapproved indication [Unknown]
  - Myocarditis [Fatal]
  - Off label use [Unknown]

NARRATIVE: CASE EVENT DATE: 20200101
